FAERS Safety Report 5754900-0 (Version None)
Quarter: 2008Q2

REPORT INFORMATION
  Report Type: 
  Country: None (occurrence: None)
  Receive Date: 20080527
  Receipt Date: 20080509
  Transmission Date: 20081010
  Serious: Yes (Hospitalization, Other)
  Sender: FDA-Public Use
  Company Number: RENA-1000007

PATIENT
  Age: 29 Year
  Sex: Female

DRUGS (3)
  1. RENAGEL [Suspect]
     Indication: HYPERPHOSPHATAEMIA
     Dosage: 3.2 G, TID, ORAL, 106 G, BID, ORAL
     Route: 048
     Dates: start: 20020101, end: 20070826
  2. RENAGEL [Suspect]
     Indication: HYPERPHOSPHATAEMIA
     Dosage: 3.2 G, TID, ORAL, 106 G, BID, ORAL
     Route: 048
     Dates: start: 20020101, end: 20070829
  3. PRENATAL VITAMINS (ASCORBIC ACID, BIOTIN, MINERALS NOS, NICOTINIC ACID [Concomitant]

REACTIONS (3)
  - ABORTION SPONTANEOUS [None]
  - DRUG EXPOSURE BEFORE PREGNANCY [None]
  - MATERNAL DEATH AFFECTING FOETUS [None]
